FAERS Safety Report 4343445-0 (Version None)
Quarter: 2004Q2

REPORT INFORMATION
  Report Type: 
  Country: None (occurrence: None)
  Receive Date: 20040419
  Receipt Date: 20040402
  Transmission Date: 20050107
  Serious: Yes (Other)
  Sender: FDA-Public Use
  Company Number: 193229

PATIENT
  Age: 68 Year
  Sex: Female

DRUGS (6)
  1. AVONEX [Suspect]
     Indication: MULTIPLE SCLEROSIS
     Dosage: 30 MCG QW IM
     Route: 030
     Dates: start: 20010401
  2. AVONEX [Suspect]
     Indication: MULTIPLE SCLEROSIS
     Dosage: 30 MCG QW IM
     Route: 030
  3. NEURONTIN [Concomitant]
  4. TRAMADOL HCL [Concomitant]
  5. ATENOLOL [Concomitant]
  6. TRAZODONE HCL [Concomitant]

REACTIONS (2)
  - SKIN CANCER [None]
  - SKIN GRAFT [None]
